FAERS Safety Report 7446244-6 (Version None)
Quarter: 2011Q2

REPORT INFORMATION
  Report Type: 
  Country: None (occurrence: None)
  Receive Date: 20110429
  Receipt Date: 20100601
  Transmission Date: 20111010
  Serious: No
  Sender: FDA-Public Use
  Company Number: US-ASTRAZENECA-2010SE25236

PATIENT
  Age: 75 Year
  Sex: Female

DRUGS (5)
  1. TOPROL-XL [Concomitant]
  2. DIOVAN [Concomitant]
  3. SIMVASTATIN [Concomitant]
  4. NEXIUM [Suspect]
     Indication: HELICOBACTER INFECTION
     Route: 048
     Dates: start: 20090101
  5. PROPRANOLOL [Concomitant]

REACTIONS (2)
  - NAUSEA [None]
  - CYSTITIS [None]
